FAERS Safety Report 9013843 (Version 1)
Quarter: 2013Q1

REPORT INFORMATION
  Report Type: Spontaneous
  Country: US (occurrence: US)
  Receive Date: 20130115
  Receipt Date: 20130115
  Transmission Date: 20140127
  Serious: Yes (Hospitalization)
  Sender: FDA-Public Use
  Company Number: US-BAYER-2013-004468

PATIENT
  Age: 32 Year
  Sex: Female
  Weight: 87.08 kg

DRUGS (11)
  1. YAZ [Suspect]
  2. YASMIN [Suspect]
     Indication: MENSTRUATION IRREGULAR
  3. MOTRIN [Concomitant]
  4. DILAUDID [Concomitant]
  5. TORADOL [Concomitant]
  6. OXYGEN [Concomitant]
  7. VOLTAREN [Concomitant]
     Dosage: 1 UNK, UNK
     Route: 062
  8. ACETAMINOPHEN W/HYDROCODONE [Concomitant]
     Dosage: 7.5-500 MG
  9. METHADONE [Concomitant]
     Indication: DRUG DEPENDENCE
     Dosage: 180 MG, EVERY DAY
     Route: 048
  10. DOXYCYCLINE [Concomitant]
     Dosage: 100 MG, BID DAILY
     Route: 048
  11. SPIRONOLACTONE [Concomitant]
     Dosage: 100 MG, BID
     Route: 048

REACTIONS (2)
  - Pulmonary embolism [None]
  - Deep vein thrombosis [None]
